FAERS Safety Report 22220497 (Version 4)
Quarter: 2023Q2

REPORT INFORMATION
  Report Type: Report from Study
  Country: HR (occurrence: HR)
  Receive Date: 20230417
  Receipt Date: 20230510
  Transmission Date: 20230721
  Serious: Yes (Hospitalization, Other)
  Sender: FDA-Public Use
  Company Number: HR-002147023-NVSC2023HR080444

PATIENT

DRUGS (10)
  1. RUXOLITINIB [Suspect]
     Active Substance: RUXOLITINIB
     Indication: Myelofibrosis
     Dosage: 5 MG, BID
     Route: 048
     Dates: start: 20220208
  2. NAVITOCLAX [Suspect]
     Active Substance: NAVITOCLAX
     Indication: Myelofibrosis
     Dosage: UNK, QD (BLINDED)
     Route: 048
     Dates: start: 20220208, end: 20230103
  3. BISOPROLOL FUMARATE [Concomitant]
     Active Substance: BISOPROLOL FUMARATE
     Indication: Ischaemic heart disease prophylaxis
     Dosage: 1.25 MG, QD
     Route: 065
     Dates: start: 202104
  4. ATORVASTATIN [Concomitant]
     Active Substance: ATORVASTATIN
     Indication: Ischaemic heart disease prophylaxis
     Dosage: 10 MG, QD
     Route: 065
     Dates: start: 202104
  5. TRIMETAZIDINE DIHYDROCHLORIDE [Concomitant]
     Active Substance: TRIMETAZIDINE DIHYDROCHLORIDE
     Indication: Ischaemic heart disease prophylaxis
     Dosage: 35 MG, BID
     Route: 065
     Dates: start: 202104
  6. ANDOL [Concomitant]
     Active Substance: ASPIRIN
     Indication: Myocardial infarction
     Dosage: 100 MG, QD
     Route: 065
     Dates: start: 202104
  7. AMLODIPINE BESYLATE\INDAPAMIDE\PERINDOPRIL ARGININE [Concomitant]
     Active Substance: AMLODIPINE BESYLATE\INDAPAMIDE\PERINDOPRIL ARGININE
     Indication: Hypertension
     Dosage: UNK UNK, QD (5/1.25/5 MG)
     Route: 065
     Dates: start: 202104
  8. FUROSEMIDE [Concomitant]
     Active Substance: FUROSEMIDE
     Indication: Cardiac failure
     Dosage: 40 MG, TOTAL
     Route: 065
     Dates: start: 20230207
  9. POTASSIUM CHLORIDE [Concomitant]
     Active Substance: POTASSIUM CHLORIDE
     Indication: Product used for unknown indication
     Dosage: 2.17+2 G, TOTAL
     Route: 065
     Dates: start: 20230207
  10. ENSURE PLUS ADVANCE [Concomitant]
     Indication: Nutritional supplementation
     Dosage: 220 ML, BID
     Route: 065
     Dates: start: 20230207

REACTIONS (6)
  - Cough [Unknown]
  - SARS-CoV-2 test positive [Unknown]
  - Myelofibrosis [Unknown]
  - Malignant neoplasm progression [Unknown]
  - Pneumonia [Unknown]
  - Tracheobronchitis [Recovered/Resolved]

NARRATIVE: CASE EVENT DATE: 20221008
